FAERS Safety Report 7438113-2 (Version None)
Quarter: 2011Q2

REPORT INFORMATION
  Report Type: 
  Country: None (occurrence: None)
  Receive Date: 20110421
  Receipt Date: 20110421
  Transmission Date: 20111010
  Serious: Yes (Other)
  Sender: FDA-Public Use
  Company Number: None

PATIENT
  Age: 56 Year
  Sex: Female
  Weight: 97.5234 kg

DRUGS (2)
  1. LEVAQUIN [Suspect]
     Indication: BRONCHITIS
     Dosage: 500 MG ONCE DAILY PO
     Route: 048
     Dates: start: 20110418, end: 20110420
  2. LEVAQUIN [Suspect]
     Indication: BRONCHITIS
     Dosage: 500 MG ONCE DAILY PO
     Route: 048
     Dates: start: 20110214, end: 20110218

REACTIONS (3)
  - ARTHROPATHY [None]
  - ARTHRALGIA [None]
  - RASH [None]
